FAERS Safety Report 24323708 (Version 1)
Quarter: 2024Q3

REPORT INFORMATION
  Report Type: Spontaneous
  Country: JP (occurrence: None)
  Receive Date: 20240916
  Receipt Date: 20240916
  Transmission Date: 20241017
  Serious: Yes (Hospitalization)
  Sender: INFORLIFE
  Company Number: JP-INFO-20240283

PATIENT
  Age: 21 Year
  Sex: Female
  Weight: 57 kg

DRUGS (11)
  1. MIDAZOLAM [Suspect]
     Active Substance: MIDAZOLAM
     Indication: General anaesthesia
     Dates: start: 202204, end: 202204
  2. FENTANYL [Suspect]
     Active Substance: FENTANYL\FENTANYL CITRATE
     Indication: General anaesthesia
     Dates: start: 202204, end: 202204
  3. LIDOCAINE [Suspect]
     Active Substance: LIDOCAINE
     Indication: General anaesthesia
     Dates: start: 202204, end: 202204
  4. PROPOFOL [Suspect]
     Active Substance: PROPOFOL
     Indication: General anaesthesia
     Dates: start: 202204, end: 202204
  5. ROCURONIUM [Suspect]
     Active Substance: ROCURONIUM BROMIDE
     Indication: General anaesthesia
     Dates: start: 202204, end: 202204
  6. SEVOFLURANE [Suspect]
     Active Substance: SEVOFLURANE
     Indication: Maintenance of anaesthesia
     Dosage: ()
     Dates: start: 202204, end: 202204
  7. SUGAMMADEX [Concomitant]
     Active Substance: SUGAMMADEX
     Indication: Reversal of sedation
     Dates: start: 202204, end: 202204
  8. ACETAMINOPHEN [Concomitant]
     Active Substance: ACETAMINOPHEN
     Dates: start: 202204, end: 202204
  9. KETOROLAC [Concomitant]
     Active Substance: KETOROLAC TROMETHAMINE
     Dates: start: 202204, end: 202204
  10. DEXAMETHASONE [Concomitant]
     Active Substance: DEXAMETHASONE
     Dates: start: 202204, end: 202204
  11. ONDANSETRON [Concomitant]
     Active Substance: ONDANSETRON
     Dates: start: 202204, end: 202204

REACTIONS (1)
  - Language disorder [Recovered/Resolved]

NARRATIVE: CASE EVENT DATE: 20220401
